FAERS Safety Report 6162226-9 (Version None)
Quarter: 2009Q2

REPORT INFORMATION
  Report Type: 
  Country: None (occurrence: None)
  Receive Date: 20090421
  Receipt Date: 20090413
  Transmission Date: 20091009
  Serious: Yes (Other)
  Sender: FDA-Public Use
  Company Number: CA-ABBOTT-09P-028-0568129-00

PATIENT
  Sex: Male
  Weight: 98.064 kg

DRUGS (3)
  1. HUMIRA [Suspect]
     Indication: PSORIATIC ARTHROPATHY
     Route: 058
     Dates: start: 20080813
  2. PERCOCET [Concomitant]
     Indication: DRUG USE FOR UNKNOWN INDICATION
  3. CORGARD [Concomitant]
     Indication: DRUG USE FOR UNKNOWN INDICATION

REACTIONS (6)
  - CHEST PAIN [None]
  - EYELID CYST [None]
  - HYPOAESTHESIA [None]
  - HYPOPHAGIA [None]
  - PAIN [None]
  - VOMITING [None]
